FAERS Safety Report 5885032-9 (Version None)
Quarter: 2008Q3

REPORT INFORMATION
  Report Type: 
  Country: None (occurrence: None)
  Receive Date: 20080916
  Receipt Date: 20071203
  Transmission Date: 20090109
  Serious: No
  Sender: FDA-Public Use
  Company Number: US-TYCO HEALTHCARE/MALLINCKRODT-T200701496

PATIENT

DRUGS (1)
  1. MD-GASTROVIEW [Suspect]
     Route: 048
     Dates: start: 20071015, end: 20071015

REACTIONS (1)
  - RASH [None]
